FAERS Safety Report 16940836 (Version 4)
Quarter: 2020Q1

REPORT INFORMATION
  Report Type: Spontaneous
  Country: DE (occurrence: DE)
  Receive Date: 20191021
  Receipt Date: 20200204
  Transmission Date: 20200409
  Serious: Yes (Hospitalization, Other)
  Sender: FDA-Public Use
  Company Number: DE-PFIZER INC-2019451449

PATIENT
  Age: 15 Year
  Sex: Male
  Weight: 75 kg

DRUGS (3)
  1. PREGABALIN. [Suspect]
     Active Substance: PREGABALIN
     Indication: DRUG ABUSE
     Dosage: UNK
     Route: 048
     Dates: start: 20190531, end: 20190531
  2. 8-TETRAHYDROCANNABINOL [Concomitant]
     Active Substance: .DELTA.8-TETRAHYDROCANNABINOL
     Dosage: UNK
  3. ECSTASY [Concomitant]
     Active Substance: MIDOMAFETAMINE
     Dosage: UNK

REACTIONS (5)
  - Hypothermia [Recovered/Resolved]
  - Off label use [Unknown]
  - Somnolence [Recovered/Resolved]
  - Product use issue [Unknown]
  - Drug abuse [Recovered/Resolved]

NARRATIVE: CASE EVENT DATE: 20190531
